FAERS Safety Report 23961684 (Version 4)
Quarter: 2024Q3

REPORT INFORMATION
  Report Type: Spontaneous
  Country: US (occurrence: US)
  Receive Date: 20240611
  Receipt Date: 20240705
  Transmission Date: 20241016
  Serious: Yes (Hospitalization)
  Sender: ELI LILLY AND CO
  Company Number: US-ELI_LILLY_AND_COMPANY-US202405013261

PATIENT
  Age: 62 Year
  Sex: Male

DRUGS (3)
  1. TADALAFIL [Suspect]
     Active Substance: TADALAFIL
     Indication: Pulmonary arterial hypertension
     Dosage: UNK UNK, UNKNOWN
     Route: 065
  2. TYVASO DPI [Suspect]
     Active Substance: TREPROSTINIL
     Indication: Pulmonary arterial hypertension
     Dosage: 48 UG, QID
     Route: 055
     Dates: start: 202404
  3. TYVASO DPI [Suspect]
     Active Substance: TREPROSTINIL
     Dosage: 64 UG, QID
     Route: 055
     Dates: start: 202405

REACTIONS (8)
  - Pneumothorax [Unknown]
  - Cough [Unknown]
  - Pain [Recovered/Resolved]
  - Insomnia [Unknown]
  - Hypersomnia [Unknown]
  - Dyspnoea [Recovered/Resolved]
  - Retching [Unknown]
  - Hypotension [Unknown]
